FAERS Safety Report 16243176 (Version 1)
Quarter: 2019Q2

REPORT INFORMATION
  Report Type: Spontaneous
  Country: US (occurrence: US)
  Receive Date: 20190425
  Receipt Date: 20190425
  Transmission Date: 20190711
  Serious: Yes (Other)
  Sender: FDA-Public Use
  Company Number: None

PATIENT
  Age: 46 Year
  Sex: Female
  Weight: 56.25 kg

DRUGS (2)
  1. HYDROCODONE/ ACETAMINOPHEN 10-325 [Suspect]
     Active Substance: ACETAMINOPHEN\HYDROCODONE
     Indication: NECK PAIN
     Route: 048
     Dates: start: 20190405
  2. HYDROCODONE/ ACETAMINOPHEN 10-325 [Suspect]
     Active Substance: ACETAMINOPHEN\HYDROCODONE
     Indication: VASCULAR INJURY
     Route: 048
     Dates: start: 20190405

REACTIONS (3)
  - Drug ineffective [None]
  - Product complaint [None]
  - Abdominal pain upper [None]

NARRATIVE: CASE EVENT DATE: 20190405
